FAERS Safety Report 8437228-X (Version None)
Quarter: 2012Q2

REPORT INFORMATION
  Report Type: 
  Country: None (occurrence: None)
  Receive Date: 20120614
  Receipt Date: 20120227
  Transmission Date: 20120825
  Serious: No
  Sender: FDA-Public Use
  Company Number: US-AMGEN-USASP2012012538

PATIENT
  Age: 78 Year
  Sex: Female

DRUGS (5)
  1. PROLIA [Suspect]
     Indication: OSTEOPOROSIS POSTMENOPAUSAL
     Dosage: UNK
     Dates: start: 20110101
  2. CALCIUM [Concomitant]
  3. CELEBREX [Concomitant]
  4. LEXAPRO [Concomitant]
  5. PROTONIX [Concomitant]

REACTIONS (2)
  - BALANCE DISORDER [None]
  - HEADACHE [None]
